FAERS Safety Report 8369803-5 (Version None)
Quarter: 2012Q1

REPORT INFORMATION
  Report Type: 
  Country: None (occurrence: None)
  Receive Date: 20120323
  Receipt Date: 20110120
  Transmission Date: 20120608
  Serious: Yes (Hospitalization)
  Sender: FDA-Public Use
  Company Number: 163-21880-11012196

PATIENT
  Age: 59 Year
  Sex: Female
  Weight: 120.4 kg

DRUGS (13)
  1. DEXAMETHASONE [Concomitant]
  2. CALCIUM CARBONATE [Concomitant]
  3. POTASSIUM CHLORIDE [Concomitant]
  4. ZETIA [Concomitant]
  5. COUMADIN [Concomitant]
  6. ADVAIR HFA [Concomitant]
  7. VITAMIN D [Concomitant]
  8. ACYCLOVIR [Concomitant]
  9. NIFEDIPINE [Concomitant]
  10. LASIX [Concomitant]
  11. REVLIMID [Suspect]
     Indication: MULTIPLE MYELOMA
     Dosage: 25 MG, 1 IN 1 D, PO, 10 MG, DAILY FOR 28 DAYS, PO
     Route: 048
     Dates: start: 20090901
  12. REVLIMID [Suspect]
     Indication: MULTIPLE MYELOMA
     Dosage: 25 MG, 1 IN 1 D, PO, 10 MG, DAILY FOR 28 DAYS, PO
     Route: 048
     Dates: start: 20101201
  13. ZOMETA [Concomitant]

REACTIONS (1)
  - THROMBOSIS [None]
